FAERS Safety Report 6818595-7 (Version None)
Quarter: 2010Q3

REPORT INFORMATION
  Report Type: 
  Country: None (occurrence: None)
  Receive Date: 20100706
  Receipt Date: 20090407
  Transmission Date: 20110219
  Serious: No
  Sender: FDA-Public Use
  Company Number: US-PFIZER INC-9508097

PATIENT
  Sex: Male
  Weight: 67.6 kg

DRUGS (7)
  1. ZITHROMAX [Suspect]
     Indication: SINUSITIS
     Dosage: UNK, 500MG/DAY
     Route: 048
     Dates: start: 19950701, end: 19950701
  2. ZITHROMAX [Suspect]
     Dosage: DAILY
     Route: 048
     Dates: start: 19950701, end: 19950701
  3. METHYLPREDNISOLONE [Suspect]
     Dates: start: 20090301
  4. SUDAFED 12 HOUR [Concomitant]
     Route: 048
  5. MULTI-VITAMINS [Concomitant]
     Dosage: UNK
  6. UNSPECIFIED ALLERGY SHOTS [Concomitant]
  7. CHLOR-TRIMETON [Concomitant]

REACTIONS (7)
  - ANOSMIA [None]
  - BLOOD CHOLESTEROL INCREASED [None]
  - FUNGAL INFECTION [None]
  - HYPOGEUSIA [None]
  - SINUSITIS [None]
  - TONGUE DISORDER [None]
  - UPPER RESPIRATORY TRACT INFECTION [None]
